FAERS Safety Report 7958243-6 (Version None)
Quarter: 2011Q4

REPORT INFORMATION
  Report Type: 
  Country: None (occurrence: None)
  Receive Date: 20111205
  Receipt Date: 20111122
  Transmission Date: 20120403
  Serious: Yes (Death, Hospitalization)
  Sender: FDA-Public Use
  Company Number: CA-ROCHE-GNE311415

PATIENT
  Sex: Male
  Weight: 66.071 kg

DRUGS (2)
  1. OMALIZUMAB [Suspect]
     Indication: ASTHMA
     Dosage: 375 MG, Q2W
     Route: 058
     Dates: start: 20090402
  2. OMALIZUMAB [Suspect]
     Dosage: 375 MG, Q2W
     Route: 058
     Dates: start: 20101020

REACTIONS (7)
  - PSEUDOMONAS INFECTION [None]
  - OBSTRUCTIVE AIRWAYS DISORDER [None]
  - CHRONIC OBSTRUCTIVE PULMONARY DISEASE [None]
  - FORCED EXPIRATORY VOLUME ABNORMAL [None]
  - SEPSIS [None]
  - HYPOXIA [None]
  - RESPIRATORY FAILURE [None]
